FAERS Safety Report 4391509-8 (Version None)
Quarter: 2004Q3

REPORT INFORMATION
  Report Type: 
  Country: None (occurrence: None)
  Receive Date: 20040702
  Receipt Date: 20040312
  Transmission Date: 20050211
  Serious: Yes (Hospitalization)
  Sender: FDA-Public Use
  Company Number: 2004UW04761

PATIENT
  Age: 59 Year
  Sex: Male

DRUGS (7)
  1. CRESTOR [Suspect]
     Dosage: 10 MG DAILY PO
     Route: 048
  2. VASOTEC [Suspect]
     Dosage: 20 MG BID PO
     Route: 048
  3. NO MATCH [Suspect]
     Dosage: 1000 MG DAILY PO
     Route: 048
  4. ALLOPURINOL [Concomitant]
  5. ASPIRIN [Concomitant]
  6. FUROSEMIDE [Concomitant]
  7. VALSARTAN [Concomitant]

REACTIONS (3)
  - FLATULENCE [None]
  - PANCREATITIS ACUTE [None]
  - RENAL DISORDER [None]
